FAERS Safety Report 17886977 (Version 2)
Quarter: 2020Q3

REPORT INFORMATION
  Report Type: Report from Study
  Country: CA (occurrence: CA)
  Receive Date: 20200611
  Receipt Date: 20200807
  Transmission Date: 20201103
  Serious: Yes (Death)
  Sender: FDA-Public Use
  Company Number: CA-HLS-202000710

PATIENT
  Age: 78 Year
  Sex: Female
  Weight: 62 kg

DRUGS (9)
  1. AZITHROMYCIN ANHYDROUS. [Concomitant]
     Active Substance: AZITHROMYCIN ANHYDROUS
     Route: 048
     Dates: start: 20200417, end: 20200417
  2. CLOZARIL [Suspect]
     Active Substance: CLOZAPINE
     Indication: DEMENTIA WITH LEWY BODIES
     Route: 048
     Dates: start: 20181004, end: 20200422
  3. ACETAMINOPHEN. [Concomitant]
     Active Substance: ACETAMINOPHEN
     Indication: PAIN
     Dosage: QIDPRN
     Route: 048
     Dates: start: 20200407, end: 20200415
  4. CLOZARIL [Suspect]
     Active Substance: CLOZAPINE
     Indication: PSYCHOTIC SYMPTOM
     Route: 048
     Dates: start: 20181004, end: 20200422
  5. CLOZARIL [Suspect]
     Active Substance: CLOZAPINE
     Indication: PSYCHOTIC SYMPTOM
     Dosage: 03?DEC?2018 TO 12?SEP?2019 68.75 MG HS?12?SEP?2019 TO 07?APR?2020 75 MG HS?07?APR?2020 TO 12?APR?202
     Route: 048
     Dates: start: 20181203, end: 20200417
  6. CEFRIAXONE [Concomitant]
     Active Substance: CEFTRIAXONE
     Route: 030
     Dates: start: 20200417, end: 20200417
  7. CLOZARIL [Suspect]
     Active Substance: CLOZAPINE
     Indication: DEMENTIA WITH LEWY BODIES
     Dosage: 03?DEC?2018 TO 12?SEP?2019 68.75 MG HS?12?SEP?2019 TO 07?APR?2020 75 MG HS?07?APR?2020 TO 12?APR?202
     Route: 048
     Dates: start: 20181203, end: 20200417
  8. MIDODRINE [Concomitant]
     Active Substance: MIDODRINE
     Indication: ORTHOSTATIC HYPOTENSION
     Route: 048
     Dates: start: 20190612, end: 20200417
  9. DICLOFENAC EMULGEL [Concomitant]
     Indication: PAIN
     Route: 065
     Dates: start: 20191118, end: 20200417

REACTIONS (2)
  - COVID-19 pneumonia [Fatal]
  - White blood cell count decreased [Recovered/Resolved]

NARRATIVE: CASE EVENT DATE: 20200404
